FAERS Safety Report 13121110 (Version 5)
Quarter: 2020Q3

REPORT INFORMATION
  Report Type: Spontaneous
  Country: US (occurrence: US)
  Receive Date: 20170117
  Receipt Date: 20200706
  Transmission Date: 20201102
  Serious: No
  Sender: FDA-Public Use
  Company Number: US-ASTRAZENECA-2017SE02604

PATIENT
  Age: 25658 Day
  Sex: Female
  Weight: 80.7 kg

DRUGS (4)
  1. BYDUREON BCISE [Suspect]
     Active Substance: EXENATIDE
     Indication: TYPE 2 DIABETES MELLITUS
     Route: 065
     Dates: start: 20161202
  2. BYDUREON [Suspect]
     Active Substance: EXENATIDE
     Indication: TYPE 2 DIABETES MELLITUS
     Route: 065
     Dates: start: 20180113
  3. METFORMIN [Concomitant]
     Active Substance: METFORMIN HYDROCHLORIDE
     Indication: TYPE 2 DIABETES MELLITUS
     Route: 048
     Dates: start: 2012
  4. SIMVASTATIN. [Concomitant]
     Active Substance: SIMVASTATIN
     Indication: BLOOD CHOLESTEROL

REACTIONS (5)
  - Injection site mass [Not Recovered/Not Resolved]
  - Weight decreased [Unknown]
  - Device dispensing error [Unknown]
  - Injection site pain [Unknown]
  - Injection site erythema [Unknown]

NARRATIVE: CASE EVENT DATE: 20161202
